FAERS Safety Report 23842203 (Version 1)
Quarter: 2024Q2

REPORT INFORMATION
  Report Type: Spontaneous
  Country: US (occurrence: US)
  Receive Date: 20240510
  Receipt Date: 20240510
  Transmission Date: 20240716
  Serious: No
  Sender: FDA-Public Use
  Company Number: US-ABBVIE-5747877

PATIENT
  Sex: Female

DRUGS (2)
  1. DEPAKOTE [Suspect]
     Active Substance: DIVALPROEX SODIUM
     Indication: Cerebral disorder
     Dosage: LAST ADMIN DATE :  2024
     Route: 048
     Dates: start: 20240313
  2. DEPAKOTE [Suspect]
     Active Substance: DIVALPROEX SODIUM
     Indication: Cerebral disorder
     Dosage: FIRST ADMIN : 2024
     Route: 048

REACTIONS (7)
  - Hypersomnia [Unknown]
  - Migraine [Recovering/Resolving]
  - Nausea [Recovering/Resolving]
  - Lethargy [Recovering/Resolving]
  - Illness [Recovering/Resolving]
  - Pruritus [Recovering/Resolving]
  - Aggression [Unknown]

NARRATIVE: CASE EVENT DATE: 20240101
